FAERS Safety Report 8359354-6 (Version None)
Quarter: 2012Q2

REPORT INFORMATION
  Report Type: 
  Country: None (occurrence: None)
  Receive Date: 20120515
  Receipt Date: 20120510
  Transmission Date: 20120825
  Serious: Yes (Other)
  Sender: FDA-Public Use
  Company Number: US-PFIZER INC-2012115246

PATIENT
  Sex: Male
  Weight: 77.098 kg

DRUGS (2)
  1. GABAPENTIN [Suspect]
     Indication: PAIN
     Dosage: UNK
     Route: 048
     Dates: start: 20120101, end: 20120101
  2. NITROGLYCERIN [Concomitant]
     Dosage: UNK

REACTIONS (4)
  - SUICIDE ATTEMPT [None]
  - DYSARTHRIA [None]
  - ABNORMAL BEHAVIOUR [None]
  - DEPRESSION [None]
